FAERS Safety Report 18255297 (Version 1)
Quarter: 2020Q3

REPORT INFORMATION
  Report Type: Spontaneous
  Country: US (occurrence: US)
  Receive Date: 20200910
  Receipt Date: 20200910
  Transmission Date: 20201103
  Serious: Yes (Disabling, Other)
  Sender: FDA-Public Use
  Company Number: US-PURDUE-USA-2020-0165618

PATIENT
  Sex: Male

DRUGS (3)
  1. CARISOPRODOL. [Concomitant]
     Active Substance: CARISOPRODOL
     Indication: PRODUCT USED FOR UNKNOWN INDICATION
     Dosage: 350 MG, UNK
     Route: 048
  2. HYDROCODONE BITARTRATE AND ACETAMINOPHEN [Suspect]
     Active Substance: ACETAMINOPHEN\HYDROCODONE BITARTRATE
     Indication: PAIN
     Dosage: 660 MG, TID
     Route: 048
  3. OXYCONTIN [Suspect]
     Active Substance: OXYCODONE HYDROCHLORIDE
     Indication: PAIN
     Dosage: 20 MG, Q12H
     Route: 048
     Dates: start: 2001

REACTIONS (11)
  - Paranoia [Unknown]
  - Agitation [Unknown]
  - Personality change [Unknown]
  - Aggression [Unknown]
  - Drug dependence [Unknown]
  - Drug abuse [Unknown]
  - Suicidal ideation [Unknown]
  - Anxiety [Unknown]
  - Pain [Unknown]
  - Drug abuser [Unknown]
  - Homicidal ideation [Unknown]
